FAERS Safety Report 18872976 (Version 1)
Quarter: 2021Q1

REPORT INFORMATION
  Report Type: Spontaneous
  Country: US (occurrence: US)
  Receive Date: 20210210
  Receipt Date: 20210210
  Transmission Date: 20210420
  Serious: No
  Sender: FDA-Public Use
  Company Number: US-MYLANLABS-2021M1007483

PATIENT
  Sex: Female
  Weight: 61 kg

DRUGS (1)
  1. XULANE [Suspect]
     Active Substance: ETHINYL ESTRADIOL\NORELGESTROMIN
     Indication: CONTRACEPTION
     Dosage: UNK UNK, QW, 150/35   MICROGRAM
     Route: 062

REACTIONS (3)
  - Wrong technique in product usage process [Recovering/Resolving]
  - Product quality issue [Recovering/Resolving]
  - Product adhesion issue [Recovering/Resolving]
